FAERS Safety Report 25771643 (Version 1)
Quarter: 2025Q3

REPORT INFORMATION
  Report Type: Spontaneous
  Country: US (occurrence: US)
  Receive Date: 20250908
  Receipt Date: 20250908
  Transmission Date: 20251020
  Serious: No
  Sender: DOMPE FARMACEUTICI
  Company Number: US-FARMAPROD-202505-1516

PATIENT
  Sex: Female

DRUGS (20)
  1. OXERVATE [Suspect]
     Active Substance: CENEGERMIN-BKBJ
     Indication: Neurotrophic keratopathy
     Route: 047
     Dates: start: 20250501
  2. OXERVATE [Suspect]
     Active Substance: CENEGERMIN-BKBJ
     Indication: Hypoaesthesia eye
  3. ARTIFICIAL TEARS [Concomitant]
  4. ASPIRIN [Concomitant]
     Active Substance: ASPIRIN
  5. BENADRYL [Concomitant]
     Active Substance: DIPHENHYDRAMINE HYDROCHLORIDE
  6. REPATHA [Concomitant]
     Active Substance: EVOLOCUMAB
  7. FAMOTIDINE [Concomitant]
     Active Substance: FAMOTIDINE
  8. PROTONIX [Concomitant]
     Active Substance: PANTOPRAZOLE SODIUM
  9. ESCITALOPRAM OXALATE [Concomitant]
     Active Substance: ESCITALOPRAM OXALATE
  10. GABAPENTIN [Concomitant]
     Active Substance: GABAPENTIN
  11. GABAPENTIN [Concomitant]
     Active Substance: GABAPENTIN
  12. LISINOPRIL [Concomitant]
     Active Substance: LISINOPRIL
  13. CLOPIDOGREL [Concomitant]
     Active Substance: CLOPIDOGREL BISULFATE
  14. ACEBUTOLOL [Concomitant]
     Active Substance: ACEBUTOLOL
  15. XARELTO [Concomitant]
     Active Substance: RIVAROXABAN
  16. VENTOLIN HFA [Concomitant]
     Active Substance: ALBUTEROL SULFATE
  17. TRELEGY ELLIPTA [Concomitant]
     Active Substance: FLUTICASONE FUROATE\UMECLIDINIUM BROMIDE\VILANTEROL TRIFENATATE
  18. BACLOFEN [Concomitant]
     Active Substance: BACLOFEN
  19. WEGOVY [Concomitant]
     Active Substance: SEMAGLUTIDE
  20. ACETAMINOPHEN\HYDROCODONE [Concomitant]
     Active Substance: ACETAMINOPHEN\HYDROCODONE

REACTIONS (2)
  - Eye pain [Unknown]
  - Dry eye [Unknown]
